FAERS Safety Report 6656118-6 (Version None)
Quarter: 2010Q1

REPORT INFORMATION
  Report Type: 
  Country: None (occurrence: None)
  Receive Date: 20100329
  Receipt Date: 20100318
  Transmission Date: 20100710
  Serious: Yes (Other)
  Sender: FDA-Public Use
  Company Number: B0643347A

PATIENT
  Age: 45 Year
  Sex: Female

DRUGS (2)
  1. AVAMYS [Suspect]
     Indication: RHINITIS ALLERGIC
     Route: 055
     Dates: start: 20100315, end: 20100315
  2. RUPAFIN [Concomitant]
     Indication: RHINITIS ALLERGIC
     Route: 048
     Dates: start: 20100316, end: 20100317

REACTIONS (2)
  - AGEUSIA [None]
  - ANOSMIA [None]
